FAERS Safety Report 10947696 (Version 2)
Quarter: 2017Q4

REPORT INFORMATION
  Report Type: Spontaneous
  Country: US (occurrence: US)
  Receive Date: 20150324
  Receipt Date: 20171009
  Transmission Date: 20180320
  Serious: Yes (Other)
  Sender: FDA-Public Use
  Company Number: US-RANBAXY-2015US-94150

PATIENT
  Age: 72 Year
  Sex: Male

DRUGS (3)
  1. VISMODEGIB. [Interacting]
     Active Substance: VISMODEGIB
     Indication: BASAL CELL CARCINOMA
     Dosage: UNK
     Route: 065
  2. ALEVE [Interacting]
     Active Substance: NAPROXEN SODIUM
     Indication: MYALGIA
     Dosage: 220 MG, DAILY
     Route: 065
  3. ASPIRIN. [Suspect]
     Active Substance: ASPIRIN
     Indication: MYALGIA
     Dosage: 81 MG, DAILY
     Route: 065

REACTIONS (5)
  - Blood urea increased [Unknown]
  - Cholestatic liver injury [Unknown]
  - Blood creatinine increased [Unknown]
  - Drug interaction [Unknown]
  - Myalgia [Unknown]
